FAERS Safety Report 21284782 (Version 1)
Quarter: 2022Q3

REPORT INFORMATION
  Report Type: Spontaneous
  Country: IN (occurrence: IN)
  Receive Date: 20220902
  Receipt Date: 20220902
  Transmission Date: 20221027
  Serious: Yes (Life-Threatening, Hospitalization, Other)
  Sender: FDA-Public Use
  Company Number: IN-SUN PHARMACEUTICAL INDUSTRIES LTD-2022R1-353275

PATIENT
  Age: 21 Year
  Sex: Male

DRUGS (2)
  1. ACETAMINOPHEN [Suspect]
     Active Substance: ACETAMINOPHEN
     Indication: Analgesic intervention supportive therapy
     Dosage: 325 MILLIGRAM
     Route: 065
  2. IBUPROFEN [Suspect]
     Active Substance: IBUPROFEN
     Indication: Analgesic intervention supportive therapy
     Dosage: 400 MILLIGRAM
     Route: 065

REACTIONS (3)
  - Acute kidney injury [Recovered/Resolved]
  - Anaphylactic reaction [Recovered/Resolved]
  - Rhabdomyolysis [Recovered/Resolved]
